FAERS Safety Report 17604455 (Version 1)
Quarter: 2020Q1

REPORT INFORMATION
  Report Type: Spontaneous
  Country: US (occurrence: US)
  Receive Date: 20200331
  Receipt Date: 20200331
  Transmission Date: 20200409
  Serious: Yes (Death)
  Sender: FDA-Public Use
  Company Number: US-PFIZER INC-2020132553

PATIENT

DRUGS (1)
  1. XALKORI [Suspect]
     Active Substance: CRIZOTINIB

REACTIONS (1)
  - Death [Fatal]
